FAERS Safety Report 21160465 (Version 1)
Quarter: 2022Q3

REPORT INFORMATION
  Report Type: Spontaneous
  Country: US (occurrence: US)
  Receive Date: 20220802
  Receipt Date: 20220802
  Transmission Date: 20221027
  Serious: Yes (Death, Hospitalization)
  Sender: FDA-Public Use
  Company Number: US-drreddys-LIT/USA/22/0152871

PATIENT
  Age: 72 Year
  Sex: Male

DRUGS (1)
  1. DEFEROXAMINE MESYLATE [Suspect]
     Active Substance: DEFEROXAMINE MESYLATE
     Indication: Iron overload

REACTIONS (4)
  - Mucormycosis [Fatal]
  - Pulmonary embolism [Unknown]
  - Cerebrovascular accident [Unknown]
  - Septic shock [Unknown]
